FAERS Safety Report 19403243 (Version 1)
Quarter: 2021Q2

REPORT INFORMATION
  Report Type: Spontaneous
  Country: US (occurrence: US)
  Receive Date: 20210610
  Receipt Date: 20210610
  Transmission Date: 20210717
  Serious: Yes (Other)
  Sender: FDA-Public Use
  Company Number: US-GILEAD-2021-0535225

PATIENT
  Age: 54 Year
  Sex: Male
  Weight: 111.1 kg

DRUGS (1)
  1. YESCARTA [Suspect]
     Active Substance: AXICABTAGENE CILOLEUCEL
     Indication: DIFFUSE LARGE B-CELL LYMPHOMA
     Dosage: 1 DOSAGE FORM, ONCE
     Route: 042
     Dates: start: 20210310, end: 20210310

REACTIONS (7)
  - Hyperbilirubinaemia [Not Recovered/Not Resolved]
  - Cytokine release syndrome [Not Recovered/Not Resolved]
  - Immune effector cell-associated neurotoxicity syndrome [Recovered/Resolved]
  - Fatigue [Not Recovered/Not Resolved]
  - Oliguria [Not Recovered/Not Resolved]
  - Tachycardia [Not Recovered/Not Resolved]
  - Arthralgia [Not Recovered/Not Resolved]

NARRATIVE: CASE EVENT DATE: 20210315
